FAERS Safety Report 7935134-8 (Version None)
Quarter: 2011Q4

REPORT INFORMATION
  Report Type: 
  Country: None (occurrence: None)
  Receive Date: 20111122
  Receipt Date: 20111117
  Transmission Date: 20120403
  Serious: Yes (Hospitalization, Other)
  Sender: FDA-Public Use
  Company Number: PHEH2006US03541

PATIENT
  Sex: Male
  Weight: 97.505 kg

DRUGS (23)
  1. PROTONIX [Concomitant]
  2. VINCRISTINE [Concomitant]
  3. BACTRIM [Concomitant]
  4. WARFARIN SODIUM [Concomitant]
  5. FLUCONAZOLE [Concomitant]
  6. AMOXICILLIN [Concomitant]
  7. DOXORUBICIN HCL [Concomitant]
  8. COUMADIN [Concomitant]
  9. DIFLUCAN [Concomitant]
     Dosage: 400, QD
  10. ZOMETA [Suspect]
     Indication: METASTASES TO BONE
     Dosage: 4 MG, QMO
     Dates: end: 20041215
  11. LISINOPRIL [Concomitant]
  12. ZOCOR [Concomitant]
     Indication: HYPERLIPIDAEMIA
  13. ACETAMINOPHEN [Concomitant]
  14. VALTREX [Concomitant]
  15. LIPITOR [Concomitant]
     Dosage: 20 MG, UNK
  16. RANITIDINE [Concomitant]
  17. HYDROMORPHONE HCL [Concomitant]
  18. PREDNISONE TAB [Concomitant]
     Dosage: 50 MG, BID
  19. PREVACID [Concomitant]
  20. SENOKOT                                 /UNK/ [Concomitant]
  21. LIPITOR [Concomitant]
  22. NEXIUM [Concomitant]
  23. VORICONAZOLE [Concomitant]
     Dosage: 200 MG, UNK

REACTIONS (38)
  - BONE DISORDER [None]
  - EDENTULOUS [None]
  - PLASMACYTOMA [None]
  - MASS [None]
  - PAIN [None]
  - TRISMUS [None]
  - SUBMANDIBULAR MASS [None]
  - CONSTIPATION [None]
  - SYNCOPE [None]
  - LYMPHADENOPATHY [None]
  - OSTEOLYSIS [None]
  - GLOSSODYNIA [None]
  - DENTAL CARIES [None]
  - WALKING AID USER [None]
  - OSTEOMYELITIS [None]
  - WEIGHT DECREASED [None]
  - JAW FRACTURE [None]
  - HAEMORRHAGE [None]
  - PNEUMOTHORAX [None]
  - ARTERIOSCLEROSIS CORONARY ARTERY [None]
  - EPISTAXIS [None]
  - VISION BLURRED [None]
  - WHEELCHAIR USER [None]
  - ENCEPHALOPATHY [None]
  - DIZZINESS [None]
  - OSTEONECROSIS OF JAW [None]
  - MASTICATION DISORDER [None]
  - OSTEORADIONECROSIS [None]
  - ABSCESS JAW [None]
  - TONGUE INJURY [None]
  - ATRIAL FIBRILLATION [None]
  - GAIT DISTURBANCE [None]
  - FRACTURE [None]
  - PNEUMONITIS [None]
  - DYSPNOEA [None]
  - BONE PAIN [None]
  - SWELLING [None]
  - PAPILLOEDEMA [None]
